FAERS Safety Report 7337620-0 (Version None)
Quarter: 2011Q1

REPORT INFORMATION
  Report Type: 
  Country: None (occurrence: None)
  Receive Date: 20110308
  Receipt Date: 20110225
  Transmission Date: 20110831
  Serious: Yes (Death, Life-Threatening, Hospitalization)
  Sender: FDA-Public Use
  Company Number: FR-PFIZER INC-FR-WYE-H13872410

PATIENT
  Sex: Female

DRUGS (6)
  1. CORTANCYL [Suspect]
     Dosage: 40 MG, UNK
     Route: 048
  2. TEMODAL [Suspect]
     Dosage: 250 MG, UNK
     Route: 048
     Dates: start: 20090105, end: 20090204
  3. LAMICTAL [Suspect]
     Dosage: 100 MG, UNK
     Route: 048
  4. EUPANTOL [Suspect]
     Route: 048
  5. BACTRIM [Suspect]
     Indication: PROPHYLAXIS
     Dosage: 3 DOSE FORMS, FREQ UNKN
     Route: 048
  6. XANAX [Suspect]
     Dosage: 0.25 MG, UNK
     Route: 048

REACTIONS (5)
  - HAEMORRHAGE [None]
  - BONE MARROW FAILURE [None]
  - MULTI-ORGAN FAILURE [None]
  - METABOLIC DISORDER [None]
  - RENAL FAILURE [None]
